FAERS Safety Report 9572162 (Version 1)
Quarter: 2013Q4

REPORT INFORMATION
  Report Type: Spontaneous
  Country: FR (occurrence: FR)
  Receive Date: 20131001
  Receipt Date: 20131001
  Transmission Date: 20140711
  Serious: Yes (Other)
  Sender: FDA-Public Use
  Company Number: FR-PFIZER INC-2013274625

PATIENT
  Age: 70 Year
  Sex: Male

DRUGS (6)
  1. XALATAN [Suspect]
     Indication: GLAUCOMA
     Dosage: 1 GTT, DAILY
     Route: 047
     Dates: start: 20091201
  2. XALACOM [Suspect]
     Indication: GLAUCOMA
     Dosage: 1 GTT, DAILY
     Route: 047
     Dates: start: 20081118, end: 20091130
  3. CARTEOL [Suspect]
     Indication: GLAUCOMA
     Dosage: 1 GTT, DAILY
     Route: 047
     Dates: start: 20050307, end: 20081117
  4. CARTEOL [Suspect]
     Dosage: 1 GTT, DAILY
     Route: 047
     Dates: start: 20100622, end: 20120319
  5. TRUSOPT [Suspect]
     Indication: GLAUCOMA
     Dosage: 2 GTT, ONCE DAILY
     Route: 047
     Dates: start: 20091201, end: 20100621
  6. TRUSOPT [Suspect]
     Dosage: 2 GTT, ONCE DAILY
     Route: 047
     Dates: start: 20130625

REACTIONS (1)
  - Raynaud^s phenomenon [Not Recovered/Not Resolved]
